FAERS Safety Report 10700480 (Version 1)
Quarter: 2014Q4

REPORT INFORMATION
  Report Type: Spontaneous
  Country: US (occurrence: None)
  Receive Date: 20141224
  Receipt Date: 20141224
  Transmission Date: 20150529
  Serious: No
  Sender: FDA-Public Use
  Company Number: CABO-14004756

PATIENT
  Age: 53 Year
  Sex: Male

DRUGS (4)
  1. COMETRIQ [Suspect]
     Active Substance: CABOZANTINIB S-MALATE
     Indication: PROSTATE CANCER
     Route: 048
     Dates: start: 20140908
  2. MULTIVITAMIN (VITAMINS NOS) [Concomitant]
     Active Substance: VITAMINS
  3. PREDNISONE (PREDNISONE) [Concomitant]
     Active Substance: PREDNISONE
  4. CALCIUM  (CALCIUM) [Concomitant]
     Active Substance: CALCIUM

REACTIONS (5)
  - Nausea [None]
  - Malaise [None]
  - Off label use [None]
  - Nasopharyngitis [None]
  - Diarrhoea [None]

NARRATIVE: CASE EVENT DATE: 201409
